FAERS Safety Report 7752306-6 (Version None)
Quarter: 2011Q3

REPORT INFORMATION
  Report Type: 
  Country: None (occurrence: None)
  Receive Date: 20110915
  Receipt Date: 20110909
  Transmission Date: 20111222
  Serious: Yes (Death, Other)
  Sender: FDA-Public Use
  Company Number: FR-ASTELLAS-2011EU006187

PATIENT
  Age: 55 Year
  Sex: Male
  Weight: 74 kg

DRUGS (1)
  1. MICAFUNGIN INJECTION [Suspect]
     Indication: PROPHYLAXIS
     Dosage: 100 MG, UNKNOWN/D
     Route: 065
     Dates: start: 20110310

REACTIONS (2)
  - DEATH [None]
  - MULTI-ORGAN FAILURE [None]
